FAERS Safety Report 8547720 (Version 6)
Quarter: 2013Q2

REPORT INFORMATION
  Report Type: Spontaneous
  Country: JP (occurrence: JP)
  Receive Date: 20120504
  Receipt Date: 20130517
  Transmission Date: 20140414
  Serious: Yes (Hospitalization, Other)
  Sender: FDA-Public Use
  Company Number: JP-TEVA-330662USA

PATIENT
  Age: 67 Year
  Sex: Female
  Weight: 43 kg

DRUGS (12)
  1. TREANDA [Suspect]
     Indication: B-CELL LYMPHOMA
     Dosage: 130 MILLIGRAM DAILY;
     Route: 042
     Dates: start: 20120306, end: 20120307
  2. TREANDA [Suspect]
     Dosage: 130 MILLIGRAM DAILY;
     Route: 042
     Dates: start: 20110712, end: 20110713
  3. TREANDA [Suspect]
     Dosage: 130 MILLIGRAM DAILY;
     Route: 042
     Dates: start: 20110808, end: 20110809
  4. TREANDA [Suspect]
     Dosage: 130 MILLIGRAM DAILY;
     Route: 042
     Dates: start: 20110905, end: 20110906
  5. ACICLOVIR [Suspect]
     Indication: PROPHYLAXIS
     Dosage: 200 MILLIGRAM DAILY;
     Route: 048
     Dates: start: 20110712, end: 20111101
  6. ACICLOVIR [Suspect]
     Dosage: 200 MILLIGRAM DAILY;
     Route: 048
     Dates: start: 20120306, end: 2012
  7. SULFAMETHOXAZOLE AND TRIMETHOPRIM [Suspect]
     Indication: PROPHYLAXIS
     Dosage: 2 DF UNKNOWN/D
     Route: 048
     Dates: start: 20110712, end: 20110909
  8. SULFAMETHOXAZOLE AND TRIMETHOPRIM [Suspect]
     Dosage: 2 DF UNKNOWN/D
     Route: 048
     Dates: start: 20120306, end: 2012
  9. FAMOTIDINE [Suspect]
     Dosage: 20 MILLIGRAM DAILY;
     Dates: start: 20110712, end: 20110909
  10. FAMOTIDINE [Suspect]
     Dosage: 20 MILLIGRAM DAILY;
     Dates: start: 20120306, end: 2012
  11. GRANISETRON [Concomitant]
  12. DEXAMETHASONE [Concomitant]
     Dates: start: 20110712

REACTIONS (5)
  - Stevens-Johnson syndrome [Recovered/Resolved]
  - Liver disorder [Unknown]
  - Injection site pain [Recovered/Resolved]
  - Neutrophil count decreased [Unknown]
  - Lymphocyte count decreased [Unknown]
